FAERS Safety Report 20691007 (Version 1)
Quarter: 2022Q2

REPORT INFORMATION
  Report Type: Spontaneous
  Country: US (occurrence: None)
  Receive Date: 20220406
  Receipt Date: 20220406
  Transmission Date: 20220721
  Serious: Yes (Hospitalization)
  Sender: FDA-Public Use
  Company Number: None

PATIENT
  Age: 52 Year
  Sex: Female

DRUGS (1)
  1. AUBAGIO [Suspect]
     Active Substance: TERIFLUNOMIDE
     Dosage: 14MG DAILY ORAL?
     Route: 048
     Dates: start: 202108

REACTIONS (3)
  - Abdominal pain [None]
  - Liver injury [None]
  - Therapy cessation [None]

NARRATIVE: CASE EVENT DATE: 20211022
